FAERS Safety Report 16521362 (Version 8)
Quarter: 2022Q2

REPORT INFORMATION
  Report Type: Report from Study
  Country: US (occurrence: US)
  Receive Date: 20190702
  Receipt Date: 20220428
  Transmission Date: 20220721
  Serious: Yes (Hospitalization)
  Sender: FDA-Public Use
  Company Number: PHEH2019US027146

PATIENT
  Age: 39 Year
  Sex: Female
  Weight: 85.714 kg

DRUGS (5)
  1. TREPROSTINIL [Suspect]
     Active Substance: TREPROSTINIL
     Indication: Pulmonary arterial hypertension
     Dosage: UNK UNK, CONT (73 NG/KG/MIN)
     Route: 042
     Dates: start: 20190424
  2. TREPROSTINIL [Suspect]
     Active Substance: TREPROSTINIL
     Dosage: UNK UNK, CONT (73 NG/KG/MIN)
     Route: 042
     Dates: start: 20190424
  3. OPSUMIT [Concomitant]
     Active Substance: MACITENTAN
     Indication: Product used for unknown indication
     Dosage: UNK
     Route: 065
  4. TADALAFIL [Concomitant]
     Active Substance: TADALAFIL
     Indication: Product used for unknown indication
     Dosage: UNK
     Route: 065
  5. WARFARIN [Concomitant]
     Active Substance: WARFARIN
     Indication: Product used for unknown indication
     Dosage: UNK
     Route: 065

REACTIONS (9)
  - Hypervolaemia [Unknown]
  - Vascular device infection [Unknown]
  - Chest pain [Unknown]
  - Chest discomfort [Unknown]
  - Dyspnoea [Unknown]
  - Hyperhidrosis [Unknown]
  - Panic attack [Unknown]
  - Infusion site erythema [Unknown]
  - Catheter site vesicles [Unknown]

NARRATIVE: CASE EVENT DATE: 20190910
